FAERS Safety Report 8974799 (Version 1)
Quarter: 2012Q4

REPORT INFORMATION
  Report Type: 
  Country: ES (occurrence: ES)
  Receive Date: 20121219
  Receipt Date: 20121219
  Transmission Date: 20130627
  Serious: Yes (Other)
  Sender: FDA-Public Use
  Company Number: ES-TEVA-375929ISR

PATIENT
  Age: 64 Year
  Sex: Female

DRUGS (13)
  1. ACTIQ [Suspect]
     Dosage: 2400 Microgram Daily;
     Route: 048
     Dates: start: 20120817
  2. PRADAXA [Suspect]
     Indication: ATRIAL FIBRILLATION
     Dosage: 220 Milligram Daily;
     Route: 048
     Dates: start: 20120925
  3. DIGOXINA [Suspect]
     Dates: start: 20120109
  4. ENALAPRIL [Concomitant]
     Dates: start: 20120109
  5. RABEPRAZOL [Concomitant]
     Dates: start: 20120109
  6. LANTUS 100U/ML SOLOSTAR 5 PLUMAS 3ML SOL INYECTABLE [Concomitant]
     Dates: start: 20100907
  7. AMLODIPINE [Concomitant]
     Dates: start: 20120109
  8. ADIRO [Concomitant]
     Route: 048
     Dates: start: 20091202
  9. NOVORAPID FLEXPEN 100 U/ML SOLUCION INYECTABLE EN PLUMA PRECARGADA [Concomitant]
     Dates: start: 20100907
  10. ALDACTONE 25 MG COMPRIMIDOS RECUBIERTOS CON PELICULA [Concomitant]
     Dates: start: 20110225
  11. EUTIROX 25 MICROGRAMOS COMPRIMIDO [Concomitant]
     Dates: start: 20120126
  12. FOLI-DOCE [Concomitant]
     Dates: start: 20120511
  13. ZARATOR 40 MG COMPRIMIDOS RECUBIERTOS CON PELICULA [Concomitant]
     Dates: start: 20091124

REACTIONS (1)
  - Tooth fracture [Not Recovered/Not Resolved]
